FAERS Safety Report 6596253-4 (Version None)
Quarter: 2010Q1

REPORT INFORMATION
  Report Type: 
  Country: None (occurrence: None)
  Receive Date: 20100223
  Receipt Date: 20100216
  Transmission Date: 20100710
  Serious: Yes (Hospitalization)
  Sender: FDA-Public Use
  Company Number: BE-ABBOTT-10P-013-0624895-00

PATIENT
  Sex: Female

DRUGS (9)
  1. HUMIRA [Suspect]
     Indication: RHEUMATOID ARTHRITIS
     Dates: start: 20080710, end: 20090420
  2. DAKAR [Concomitant]
     Indication: DRUG USE FOR UNKNOWN INDICATION
  3. LORAMET [Concomitant]
     Indication: DRUG USE FOR UNKNOWN INDICATION
  4. SEROXAT [Concomitant]
     Indication: DRUG USE FOR UNKNOWN INDICATION
  5. OMEPRAZOLE [Concomitant]
     Indication: DRUG USE FOR UNKNOWN INDICATION
  6. OMTEC [Concomitant]
     Indication: DRUG USE FOR UNKNOWN INDICATION
  7. BUMEX [Concomitant]
     Indication: DRUG USE FOR UNKNOWN INDICATION
  8. LEDERTREXATE [Concomitant]
     Indication: DRUG USE FOR UNKNOWN INDICATION
  9. DAFALGAN [Concomitant]
     Indication: DRUG USE FOR UNKNOWN INDICATION

REACTIONS (1)
  - CHOLANGITIS [None]
